FAERS Safety Report 22014602 (Version 1)
Quarter: 2023Q1

REPORT INFORMATION
  Report Type: Report from Study
  Country: IN (occurrence: IN)
  Receive Date: 20230221
  Receipt Date: 20230221
  Transmission Date: 20230418
  Serious: Yes (Other)
  Sender: FDA-Public Use
  Company Number: IN-002147023-NVSC2023IN036027

PATIENT
  Age: 53 Year
  Sex: Male

DRUGS (1)
  1. ELTROMBOPAG OLAMINE [Suspect]
     Active Substance: ELTROMBOPAG OLAMINE
     Indication: Immune thrombocytopenia
     Dosage: 25 MG
     Route: 065
     Dates: start: 20230210

REACTIONS (5)
  - Type 2 diabetes mellitus [Unknown]
  - Fistula [Unknown]
  - Dyslipidaemia [Unknown]
  - Haemorrhoids [Unknown]
  - Coronary artery disease [Unknown]
